FAERS Safety Report 20478694 (Version 2)
Quarter: 2022Q3

REPORT INFORMATION
  Report Type: Spontaneous
  Country: US (occurrence: US)
  Receive Date: 20220216
  Receipt Date: 20220709
  Transmission Date: 20221026
  Serious: No
  Sender: FDA-Public Use
  Company Number: US-SA-SAC20220210000752

PATIENT
  Age: 53 Year

DRUGS (1)
  1. DUPIXENT [Suspect]
     Active Substance: DUPILUMAB
     Dosage: 300 MG, OTHER
     Route: 058
     Dates: start: 202201

REACTIONS (3)
  - Rash [Unknown]
  - Arthralgia [Unknown]
  - Skin swelling [Unknown]

NARRATIVE: CASE EVENT DATE: 20220201
